FAERS Safety Report 7718347-X (Version None)
Quarter: 2011Q3

REPORT INFORMATION
  Report Type: 
  Country: None (occurrence: None)
  Receive Date: 20110830
  Receipt Date: 20110823
  Transmission Date: 20111222
  Serious: Yes (Other)
  Sender: FDA-Public Use
  Company Number: PHHY2011CN76502

PATIENT
  Sex: Female
  Weight: 3.4 kg

DRUGS (1)
  1. SEBIVO [Suspect]
     Indication: HEPATITIS B
     Route: 048

REACTIONS (3)
  - HEPATITIS B DNA ASSAY POSITIVE [None]
  - HEPATITIS B SURFACE ANTIGEN POSITIVE [None]
  - HAEMANGIOMA [None]
